FAERS Safety Report 20262751 (Version 1)
Quarter: 2021Q4

REPORT INFORMATION
  Report Type: Spontaneous
  Country: SI (occurrence: SI)
  Receive Date: 20211231
  Receipt Date: 20211231
  Transmission Date: 20220303
  Serious: Yes (Other)
  Sender: FDA-Public Use
  Company Number: None

PATIENT
  Age: 52 Year
  Sex: Male

DRUGS (4)
  1. OXALIPLATIN [Suspect]
     Active Substance: OXALIPLATIN
     Indication: Rectosigmoid cancer metastatic
     Dosage: OXALIPLATIN TEVA 5 MG / ML CONCENTRATE FOR SOLUTION FOR INFUSION,UNIT DOSE:250MILLIGRAM
     Route: 042
     Dates: start: 20211011, end: 20211012
  2. PERINDOPRIL [Concomitant]
     Active Substance: PERINDOPRIL
  3. CAPECITABINE [Concomitant]
     Active Substance: CAPECITABINE
     Dosage: ACCORDING TO THE SCHEME
  4. TRASTUZUMAB [Concomitant]
     Active Substance: TRASTUZUMAB

REACTIONS (6)
  - Erythema [Recovered/Resolved]
  - Hypotension [Recovered/Resolved]
  - Atrial fibrillation [Recovered/Resolved]
  - Atrial fibrillation [Recovered/Resolved]
  - Nausea [Recovered/Resolved]
  - Oxygen saturation decreased [Recovered/Resolved]

NARRATIVE: CASE EVENT DATE: 20211011
